FAERS Safety Report 5079369-3 (Version None)
Quarter: 2006Q3

REPORT INFORMATION
  Report Type: 
  Country: None (occurrence: None)
  Receive Date: 20060808
  Receipt Date: 20060718
  Transmission Date: 20061208
  Serious: Yes (Other)
  Sender: FDA-Public Use
  Company Number: 227994

PATIENT
  Age: 63 Year
  Sex: Male
  Weight: 88 kg

DRUGS (5)
  1. AVASTIN [Suspect]
     Indication: RENAL CANCER METASTATIC
     Dosage: 800 MG, Q2W, INTRAVENOUS
     Route: 042
     Dates: start: 20051215, end: 20060615
  2. ANALGESICS          (ANALGESICS NOS) [Concomitant]
  3. SUNITINIB MALATE                 (SUNITINIB MALATE) [Concomitant]
  4. INTERFERON ALFA 2A               (INTERFERON ALFA-2A) [Concomitant]
  5. FLUOROURACIL [Concomitant]

REACTIONS (2)
  - PLATELET COUNT INCREASED [None]
  - POLYCYTHAEMIA [None]
